FAERS Safety Report 6002020-2 (Version None)
Quarter: 2008Q4

REPORT INFORMATION
  Report Type: 
  Country: None (occurrence: None)
  Receive Date: 20081215
  Receipt Date: 20081203
  Transmission Date: 20090506
  Serious: Yes (Hospitalization, Other)
  Sender: FDA-Public Use
  Company Number: US-GENENTECH-273401

PATIENT
  Sex: Female

DRUGS (3)
  1. BEVACIZUMAB [Suspect]
     Indication: BREAST CANCER
     Dosage: 10 MG/KG, DAYS 2+16
     Route: 042
  2. VORINOSTAT [Suspect]
     Indication: BREAST CANCER
     Dosage: 300 MG, UNK
     Route: 048
  3. PACLITAXEL [Suspect]
     Indication: BREAST CANCER
     Dosage: 920 MG/M2, UNK
     Route: 042

REACTIONS (2)
  - ABDOMINAL PAIN [None]
  - PYREXIA [None]
